FAERS Safety Report 18989762 (Version 1)
Quarter: 2021Q1

REPORT INFORMATION
  Report Type: Spontaneous
  Country: DE (occurrence: DE)
  Receive Date: 20210310
  Receipt Date: 20210310
  Transmission Date: 20210420
  Serious: Yes (Hospitalization, Other)
  Sender: FDA-Public Use
  Company Number: DE-BRISTOL-MYERS SQUIBB COMPANY-BMS-2021-021171

PATIENT
  Age: 86 Year
  Sex: Female
  Weight: 64 kg

DRUGS (6)
  1. METOPROLOL. [Concomitant]
     Active Substance: METOPROLOL
     Indication: PRODUCT USED FOR UNKNOWN INDICATION
     Dosage: 95 MILLIGRAM, TID
     Route: 065
  2. APIXABAN [Suspect]
     Active Substance: APIXABAN
     Indication: PRODUCT USED FOR UNKNOWN INDICATION
     Dosage: 5 MILLIGRAM, BID
     Route: 065
  3. TORASEMID [Suspect]
     Active Substance: TORSEMIDE
     Indication: PRODUCT USED FOR UNKNOWN INDICATION
     Dosage: 20 MILLIGRAM, QD
     Route: 065
  4. XIPAMID [Suspect]
     Active Substance: XIPAMIDE
     Indication: PRODUCT USED FOR UNKNOWN INDICATION
     Dosage: 5 MILLIGRAM, BID
     Route: 065
  5. RAMIPRIL. [Suspect]
     Active Substance: RAMIPRIL
     Indication: PRODUCT USED FOR UNKNOWN INDICATION
     Dosage: 25 MILLIGRAM, QD
     Route: 065
  6. LERCANIDIPIN [Concomitant]
     Active Substance: LERCANIDIPINE
     Indication: PRODUCT USED FOR UNKNOWN INDICATION
     Dosage: 20 MILLIGRAM, DAILY DOSE
     Route: 065

REACTIONS (6)
  - Product prescribing error [Unknown]
  - Fatigue [Unknown]
  - Anaemia [Unknown]
  - Haematochezia [Unknown]
  - Hypotension [Unknown]
  - General physical health deterioration [Unknown]
